FAERS Safety Report 9888436 (Version 5)
Quarter: 2014Q2

REPORT INFORMATION
  Report Type: Spontaneous
  Country: DE (occurrence: DE)
  Receive Date: 20140211
  Receipt Date: 20140421
  Transmission Date: 20141212
  Serious: Yes (Other)
  Sender: FDA-Public Use
  Company Number: DE-INCYTE CORPORATION-2014IN000273

PATIENT
  Sex: Female
  Weight: 55 kg

DRUGS (8)
  1. JAKAVI [Suspect]
     Dosage: 20 MG, 3 DAYS PER WEEK
     Route: 048
     Dates: start: 20111121
  2. JAKAVI [Suspect]
     Dosage: 15 MG, BID (2X/DAY)
     Route: 048
  3. EXJADE [Suspect]
     Indication: IRON OVERLOAD
     Dosage: 125 MG, DAILY
     Route: 065
     Dates: start: 2011
  4. EXJADE [Suspect]
     Dosage: 1500 MG, DAILY
     Route: 065
  5. EXJADE [Suspect]
     Dosage: UNK UNK, UNK
     Route: 065
  6. EXJADE [Suspect]
     Dosage: 1500MG PER DAY PLUS 250MG ON 3 DAYS/WEEK
     Route: 048
  7. BISOPROLOL [Concomitant]
  8. PANTOPRAZOLE [Concomitant]

REACTIONS (16)
  - Pneumonia [Not Recovered/Not Resolved]
  - Gait disturbance [Recovering/Resolving]
  - Tinnitus [Not Recovered/Not Resolved]
  - Palpitations [Not Recovered/Not Resolved]
  - Fall [Unknown]
  - Intervertebral disc protrusion [Unknown]
  - Urinary tract infection [Recovered/Resolved]
  - Haemoglobin decreased [Not Recovered/Not Resolved]
  - Splenomegaly [Not Recovered/Not Resolved]
  - Joint stiffness [Not Recovered/Not Resolved]
  - Diarrhoea [Not Recovered/Not Resolved]
  - Serum ferritin increased [Not Recovered/Not Resolved]
  - Blood iron increased [Unknown]
  - Platelet count decreased [Unknown]
  - Weight decreased [Unknown]
  - Night sweats [Unknown]
